FAERS Safety Report 10037512 (Version 1)
Quarter: 2014Q1

REPORT INFORMATION
  Report Type: Spontaneous
  Country: None (occurrence: None)
  Receive Date: 20140324
  Receipt Date: 20140324
  Transmission Date: 20141002
  Serious: Yes (Other)
  Sender: FDA-Public Use
  Company Number: PI-10193

PATIENT
  Age: 78 Year
  Sex: Male

DRUGS (4)
  1. CHLORAPREP [Suspect]
     Indication: INFECTION PROPHYLAXIS
     Route: 061
     Dates: start: 20120101
  2. CHLORAPREP [Suspect]
     Indication: INFECTION PROPHYLAXIS
     Route: 061
     Dates: start: 20120101
  3. GENERAL ANESTHESIA [Concomitant]
  4. PREDNISONE [Concomitant]

REACTIONS (1)
  - Anaphylactic reaction [None]
